FAERS Safety Report 25521077 (Version 1)
Quarter: 2025Q3

REPORT INFORMATION
  Report Type: Report from Study
  Country: EU (occurrence: EU)
  Receive Date: 20250705
  Receipt Date: 20250705
  Transmission Date: 20251020
  Serious: Yes (Death, Hospitalization, Other)
  Sender: CELLTRION
  Company Number: EU-PFIZER INC-202500037468

PATIENT

DRUGS (8)
  1. RITUXIMAB [Suspect]
     Active Substance: RITUXIMAB
     Indication: Lymphadenopathy
  2. RITUXIMAB [Suspect]
     Active Substance: RITUXIMAB
     Indication: Dacryoadenitis acquired
  3. RITUXIMAB [Suspect]
     Active Substance: RITUXIMAB
     Indication: Lymphadenitis
  4. RITUXIMAB [Suspect]
     Active Substance: RITUXIMAB
  5. RITUXIMAB [Suspect]
     Active Substance: RITUXIMAB
  6. BORTEZOMIB [Suspect]
     Active Substance: BORTEZOMIB
     Indication: Lymphadenopathy
  7. THALIDOMIDE [Suspect]
     Active Substance: THALIDOMIDE
     Indication: Lymphadenopathy
  8. PREDNISONE [Concomitant]
     Active Substance: PREDNISONE
     Indication: Lymphadenopathy

REACTIONS (7)
  - Acute respiratory distress syndrome [Fatal]
  - Enterococcal infection [Fatal]
  - Pancytopenia [Unknown]
  - Groin abscess [Unknown]
  - Condition aggravated [Unknown]
  - Disease recurrence [Unknown]
  - Intentional product use issue [Unknown]
